FAERS Safety Report 7575184-7 (Version None)
Quarter: 2011Q2

REPORT INFORMATION
  Report Type: 
  Country: None (occurrence: None)
  Receive Date: 20110627
  Receipt Date: 20110615
  Transmission Date: 20111010
  Serious: Yes (Hospitalization, Disabling)
  Sender: FDA-Public Use
  Company Number: FR-UCBSA-020183

PATIENT
  Sex: Female
  Weight: 58 kg

DRUGS (13)
  1. AMLODIPINE [Concomitant]
  2. LAMICTAL [Concomitant]
  3. SODIUM BICARBONATE [Concomitant]
     Dosage: 3 UNITS PER DAY
  4. OMEPRAZOLE [Concomitant]
     Route: 048
  5. VIMPAT [Suspect]
     Indication: EPILEPSY
     Route: 048
     Dates: start: 20100701, end: 20100704
  6. VIMPAT [Suspect]
     Route: 048
     Dates: start: 20100705, end: 20100901
  7. VIMPAT [Suspect]
     Dosage: REDUCED FROM PREVIOUS DOSE OF 50 MG TWICE DAILY
     Route: 048
     Dates: start: 20100901, end: 20100921
  8. URBANYL [Suspect]
     Route: 048
     Dates: end: 20100101
  9. LAMICTAL [Concomitant]
  10. SODIUM ALGINATE [Concomitant]
  11. ACETAMINOPHEN [Concomitant]
     Dosage: IF PAIN
     Route: 048
  12. GAVISCON [Concomitant]
     Dosage: 1 UNIT
     Route: 048
  13. LAMICTAL [Concomitant]
     Route: 048
     Dates: start: 20090301

REACTIONS (18)
  - SOMNOLENCE [None]
  - NAUSEA [None]
  - VOMITING [None]
  - TREMOR [None]
  - DYSSTASIA [None]
  - VERTIGO [None]
  - APHAGIA [None]
  - DISTURBANCE IN ATTENTION [None]
  - DELIRIUM [None]
  - GENERAL PHYSICAL HEALTH DETERIORATION [None]
  - ACUTE PSYCHOSIS [None]
  - URINARY TRACT INFECTION [None]
  - DISORIENTATION [None]
  - PERSECUTORY DELUSION [None]
  - CONFUSIONAL STATE [None]
  - DEHYDRATION [None]
  - APATHY [None]
  - BEDRIDDEN [None]
